FAERS Safety Report 11952347 (Version 3)
Quarter: 2016Q1

REPORT INFORMATION
  Report Type: Report from Study
  Country: US (occurrence: US)
  Receive Date: 20160126
  Receipt Date: 20160303
  Transmission Date: 20160526
  Serious: Yes (Hospitalization)
  Sender: FDA-Public Use
  Company Number: US-ACTELION-A-NJ2016-130165

PATIENT
  Age: 65 Year
  Sex: Female
  Weight: 58.5 kg

DRUGS (8)
  1. TREPROSTINIL DIOLAMIN [Suspect]
     Active Substance: TREPROSTINIL DIOLAMINE
     Dosage: 9 MG, TID
     Route: 048
     Dates: start: 20140616
  2. TREPROSTINIL DIOLAMIN [Suspect]
     Active Substance: TREPROSTINIL DIOLAMINE
     Dosage: 9 MG, TID
     Route: 048
     Dates: start: 20140616
  3. MACITENTAN [Suspect]
     Active Substance: MACITENTAN
     Indication: PULMONARY ARTERIAL HYPERTENSION
     Dosage: 10 MG, QD
     Route: 048
     Dates: start: 20151026
  4. MACITENTAN [Suspect]
     Active Substance: MACITENTAN
     Dosage: UNK
     Route: 048
     Dates: start: 20160121, end: 201601
  5. TREPROSTINIL DIOLAMIN [Suspect]
     Active Substance: TREPROSTINIL DIOLAMINE
     Indication: PULMONARY HYPERTENSION
     Dosage: 9 MG, TID
     Route: 048
     Dates: start: 20140616
  6. REVATIO [Concomitant]
     Active Substance: SILDENAFIL CITRATE
  7. MACITENTAN [Suspect]
     Active Substance: MACITENTAN
     Dosage: 10 MG, QD
     Route: 048
  8. TREPROSTINIL DIOLAMIN [Suspect]
     Active Substance: TREPROSTINIL DIOLAMINE
     Dosage: 9 MG, TID
     Route: 048
     Dates: start: 20140616

REACTIONS (6)
  - Asthma [Not Recovered/Not Resolved]
  - Dyspnoea [Unknown]
  - Upper respiratory tract infection [Recovering/Resolving]
  - Cough [Unknown]
  - No therapeutic response [Unknown]
  - Nasal congestion [Recovering/Resolving]

NARRATIVE: CASE EVENT DATE: 201511
